FAERS Safety Report 12218444 (Version 1)
Quarter: 2016Q1

REPORT INFORMATION
  Report Type: Spontaneous
  Country: US (occurrence: US)
  Receive Date: 20160329
  Receipt Date: 20160329
  Transmission Date: 20160526
  Serious: Yes (Life-Threatening, Hospitalization, Other)
  Sender: FDA-Public Use
  Company Number: US-JNJFOC-20160320827

PATIENT
  Sex: Female

DRUGS (1)
  1. INVOKANA [Suspect]
     Active Substance: CANAGLIFLOZIN
     Indication: TYPE 2 DIABETES MELLITUS
     Route: 048
     Dates: start: 20141003

REACTIONS (12)
  - Sepsis [Unknown]
  - Dehydration [Unknown]
  - Diabetic ketoacidosis [Unknown]
  - Acute kidney injury [Unknown]
  - Renal failure [Unknown]
  - Muscle atrophy [Unknown]
  - Pulmonary hypertension [Unknown]
  - Acute respiratory failure [Unknown]
  - Necrotising fasciitis [Unknown]
  - Urinary tract infection [Unknown]
  - Septic encephalopathy [Unknown]
  - Haemorrhage [Unknown]

NARRATIVE: CASE EVENT DATE: 20141008
